FAERS Safety Report 9958950 (Version 1)
Quarter: 2014Q1

REPORT INFORMATION
  Report Type: Report from Study
  Country: US (occurrence: US)
  Receive Date: 20140305
  Receipt Date: 20140305
  Transmission Date: 20141002
  Serious: No
  Sender: FDA-Public Use
  Company Number: US-ABBVIE-13P-163-1102206-00

PATIENT
  Age: 41 Year
  Sex: Female

DRUGS (4)
  1. HUMIRA [Suspect]
     Indication: PSORIASIS
     Dosage: DAY 1 / ONCE
     Dates: start: 201305
  2. HUMIRA [Suspect]
     Dosage: DAY 8 AND ONGOING
  3. METROGEL [Concomitant]
     Indication: ROSACEA
     Route: 061
  4. CLOBETASOL [Concomitant]
     Indication: PSORIASIS
     Route: 061

REACTIONS (1)
  - Abdominal pain [Recovered/Resolved]
